FAERS Safety Report 18787552 (Version 2)
Quarter: 2021Q1

REPORT INFORMATION
  Report Type: Spontaneous
  Country: RU (occurrence: RU)
  Receive Date: 20210126
  Receipt Date: 20210205
  Transmission Date: 20210419
  Serious: Yes (Hospitalization)
  Sender: FDA-Public Use
  Company Number: RU-PFIZER INC-2021060931

PATIENT
  Age: 45 Year
  Sex: Female
  Weight: 56 kg

DRUGS (1)
  1. JAQINUS [Suspect]
     Active Substance: TOFACITINIB CITRATE
     Indication: COLITIS ULCERATIVE
     Dosage: 1 DF, 2X/DAY
     Route: 048
     Dates: start: 202010, end: 202011

REACTIONS (1)
  - Crohn^s disease [Recovering/Resolving]

NARRATIVE: CASE EVENT DATE: 202012
